FAERS Safety Report 4944675-7 (Version None)
Quarter: 2006Q1

REPORT INFORMATION
  Report Type: 
  Country: None (occurrence: None)
  Receive Date: 20060315
  Receipt Date: 20060130
  Transmission Date: 20060701
  Serious: Yes (Hospitalization)
  Sender: FDA-Public Use
  Company Number: FRWYE346230JAN06

PATIENT
  Sex: Female

DRUGS (4)
  1. ENBREL [Suspect]
     Indication: PSORIATIC ARTHROPATHY
     Route: 058
     Dates: start: 20051214, end: 20060124
  2. BI-PROFENID [Concomitant]
  3. IXPRIM [Concomitant]
     Dates: start: 20050601
  4. CORTANCYL [Concomitant]
     Dates: start: 20000101

REACTIONS (8)
  - CUTANEOUS VASCULITIS [None]
  - DEEP VEIN THROMBOSIS [None]
  - DRUG INEFFECTIVE [None]
  - GROIN PAIN [None]
  - JOINT EFFUSION [None]
  - MONARTHRITIS [None]
  - NECROSIS [None]
  - TENOSYNOVITIS [None]
